FAERS Safety Report 8762902 (Version 1)
Quarter: 2012Q4

REPORT INFORMATION
  Report Type: Spontaneous
  Country: US (occurrence: None)
  Receive Date: 20120830
  Receipt Date: 20120830
  Transmission Date: 20130627
  Serious: Yes (Other)
  Sender: FDA-Public Use
  Company Number: None

PATIENT
  Age: 45 Year
  Sex: Female
  Weight: 52.16 kg

DRUGS (4)
  1. FANAPT [Suspect]
     Indication: BIPOLAR DISORDER
     Route: 048
     Dates: start: 20120815, end: 20120828
  2. FANAPT [Suspect]
     Indication: MANIA
     Route: 048
     Dates: start: 20120815, end: 20120828
  3. LAMICTAL [Concomitant]
  4. CLONAZAPAM [Concomitant]

REACTIONS (6)
  - Dyspnoea [None]
  - Muscle twitching [None]
  - Diarrhoea [None]
  - Hallucination [None]
  - Heart rate increased [None]
  - Swollen tongue [None]
